FAERS Safety Report 5447348-X (Version None)
Quarter: 2007Q3

REPORT INFORMATION
  Report Type: 
  Country: None (occurrence: None)
  Receive Date: 20070905
  Receipt Date: 20070905
  Transmission Date: 20080115
  Serious: Yes (Hospitalization)
  Sender: FDA-Public Use
  Company Number: None

PATIENT
  Age: 61 Year
  Sex: Female
  Weight: 91.173 kg

DRUGS (14)
  1. LEUKINE [Suspect]
     Indication: NEUTROPENIA
     Dosage: 450 MCG DAILY X 7-10 DAY SC
     Route: 058
     Dates: start: 20070830
  2. SYMTIN [Concomitant]
  3. PROTONIX [Concomitant]
  4. METFORMIN HCL [Concomitant]
  5. LYRICA [Concomitant]
  6. ZETIA [Concomitant]
  7. HYZAAR [Concomitant]
  8. TOPROL-XL [Concomitant]
  9. PRAVASTTIN [Concomitant]
  10. ALBUTEROL [Concomitant]
  11. HYDROCHLOROTHIAZIDE [Concomitant]
  12. PERCOCET [Concomitant]
  13. PROMETHZAINE [Concomitant]
  14. LORTAB [Concomitant]

REACTIONS (10)
  - ANXIETY [None]
  - FAECAL INCONTINENCE [None]
  - GENERAL PHYSICAL HEALTH DETERIORATION [None]
  - HEART RATE INCREASED [None]
  - HYPOTENSION [None]
  - ILL-DEFINED DISORDER [None]
  - MALAISE [None]
  - NAUSEA [None]
  - OXYGEN SATURATION DECREASED [None]
  - VOMITING [None]
